FAERS Safety Report 9258520 (Version 1)
Quarter: 2013Q2

REPORT INFORMATION
  Report Type: Spontaneous
  Country: US (occurrence: None)
  Receive Date: 20130425
  Receipt Date: 20130425
  Transmission Date: 20140414
  Serious: Yes (Other)
  Sender: FDA-Public Use
  Company Number: None

PATIENT
  Age: 41 Year
  Sex: Female

DRUGS (12)
  1. CIMZIA 200MG PFS [Suspect]
     Indication: RHEUMATOID ARTHRITIS
     Dosage: Q2WK
     Route: 058
     Dates: start: 20100506, end: 20130425
  2. VITAMIN D [Concomitant]
  3. METFORMIN [Concomitant]
  4. PERCOCET [Concomitant]
  5. ZOLPIDEM [Concomitant]
  6. LYRICA [Concomitant]
  7. FOLIC ACID [Concomitant]
  8. CLONAZEPAM [Concomitant]
  9. CRESTOR [Concomitant]
  10. FLONASE [Concomitant]
  11. TOPIRAMATE [Concomitant]
  12. TIZANIDINE [Concomitant]

REACTIONS (2)
  - Infection [None]
  - Unevaluable event [None]
